FAERS Safety Report 24664310 (Version 1)
Quarter: 2024Q4

REPORT INFORMATION
  Report Type: Spontaneous
  Country: US (occurrence: US)
  Receive Date: 20241126
  Receipt Date: 20241126
  Transmission Date: 20250114
  Serious: Yes (Death)
  Sender: CHATTEM
  Company Number: US-OPELLA-2024OHG039277

PATIENT
  Age: 50 Year
  Sex: Male

DRUGS (1)
  1. DIPHENHYDRAMINE [Suspect]
     Active Substance: DIPHENHYDRAMINE
     Indication: Product used for unknown indication
     Route: 065

REACTIONS (2)
  - Accidental overdose [Fatal]
  - No adverse event [Unknown]

NARRATIVE: CASE EVENT DATE: 20220101
